FAERS Safety Report 4301949-0 (Version None)
Quarter: 2004Q1

REPORT INFORMATION
  Report Type: 
  Country: None (occurrence: None)
  Receive Date: 20040220
  Receipt Date: 20040205
  Transmission Date: 20041129
  Serious: No
  Sender: FDA-Public Use
  Company Number: 204600

PATIENT
  Age: 14 Year
  Sex: Male
  Weight: 55.8 kg

DRUGS (2)
  1. NUTROPIN [Suspect]
     Indication: PRADER-WILLI SYNDROME
     Dosage: 4 MG, QD, SUBCUTANEOUS
     Route: 058
     Dates: start: 19960307, end: 20031016
  2. CONCERTA [Concomitant]

REACTIONS (2)
  - DIABETES MELLITUS NON-INSULIN-DEPENDENT [None]
  - GLYCOSYLATED HAEMOGLOBIN INCREASED [None]
